FAERS Safety Report 8470801-1 (Version None)
Quarter: 2012Q2

REPORT INFORMATION
  Report Type: 
  Country: None (occurrence: None)
  Receive Date: 20120620
  Receipt Date: 20120612
  Transmission Date: 20120825
  Serious: Yes (Hospitalization)
  Sender: FDA-Public Use
  Company Number: AUR-APL-2012-02261

PATIENT
  Age: 36 Year
  Sex: Female

DRUGS (5)
  1. DIAZEPAM [Concomitant]
  2. PROMETHAZINE [Concomitant]
  3. LORAZAPAM (LORAZEPAM) [Concomitant]
  4. PALIPERIDONE [Suspect]
     Indication: PSYCHOTIC DISORDER
     Dosage: (100 MG), INTRAMUSCULAR
     Route: 030
     Dates: start: 20120329
  5. CITALOPRAM HYDROBROMIDE [Suspect]
     Indication: PRODUCT USED FOR UNKNOWN INDICATION
     Dosage: 20 MG (20 MG, 1 IN 1 D), 40 MG (40 MG, 1 IN 1 D)
     Dates: start: 20120419

REACTIONS (3)
  - EXTRAPYRAMIDAL DISORDER [None]
  - PSYCHOTIC DISORDER [None]
  - AGITATION [None]
